FAERS Safety Report 10159272 (Version 1)
Quarter: 2014Q2

REPORT INFORMATION
  Report Type: Spontaneous
  Country: US (occurrence: US)
  Receive Date: 20140508
  Receipt Date: 20140508
  Transmission Date: 20141212
  Serious: Yes (Other)
  Sender: FDA-Public Use
  Company Number: US-JNJFOC-20140416534

PATIENT
  Age: 71 Year
  Sex: Female

DRUGS (7)
  1. DOXORUBICIN [Suspect]
     Indication: ADENOCARCINOMA
     Route: 042
     Dates: start: 2011, end: 2011
  2. CARBOPLATIN [Suspect]
     Indication: ADENOCARCINOMA
     Route: 065
     Dates: start: 2011, end: 2011
  3. PACLITAXEL [Suspect]
     Indication: ADENOCARCINOMA
     Route: 065
     Dates: start: 2011, end: 2011
  4. CISPLATIN [Suspect]
     Indication: ADENOCARCINOMA
     Route: 065
     Dates: start: 2011, end: 2011
  5. WARFARIN [Concomitant]
     Indication: ANTICOAGULANT THERAPY
     Route: 065
  6. ENOXAPARIN [Concomitant]
     Indication: ANTICOAGULANT THERAPY
     Route: 065
  7. DEXAMETHASONE [Concomitant]
     Route: 065

REACTIONS (3)
  - Mastocytosis [Recovered/Resolved]
  - Diverticulitis [Recovered/Resolved]
  - Off label use [Unknown]
